FAERS Safety Report 7018631-1 (Version None)
Quarter: 2010Q3

REPORT INFORMATION
  Report Type: 
  Country: None (occurrence: None)
  Receive Date: 20100928
  Receipt Date: 20100924
  Transmission Date: 20110219
  Serious: Yes (Other)
  Sender: FDA-Public Use
  Company Number: US-MERCK-1009USA04701

PATIENT
  Age: 53 Year
  Sex: Male
  Weight: 97 kg

DRUGS (5)
  1. COSOPT [Suspect]
     Route: 047
  2. AMOXICILLIN [Suspect]
     Indication: SINUSITIS
     Route: 048
     Dates: start: 20100406
  3. HYDROCHLOROTHIAZIDE [Suspect]
     Indication: BLOOD PRESSURE ABNORMAL
     Route: 048
     Dates: start: 20100301
  4. CAVERJECT [Suspect]
     Indication: ERECTILE DYSFUNCTION
     Route: 042
     Dates: start: 20080101
  5. PRED FORTE [Concomitant]
     Route: 065

REACTIONS (12)
  - BLOOD PRESSURE ABNORMAL [None]
  - DIZZINESS [None]
  - DRUG EFFECT DECREASED [None]
  - DRUG INEFFECTIVE [None]
  - DRUG INTERACTION [None]
  - INCORRECT DOSE ADMINISTERED [None]
  - PARAESTHESIA OF GENITAL MALE [None]
  - PENILE PAIN [None]
  - PENIS DEVIATION [None]
  - PRODUCT CONTAINER ISSUE [None]
  - SINUSITIS [None]
  - TESTICULAR PAIN [None]
